FAERS Safety Report 8956847 (Version 2)
Quarter: 2012Q4

REPORT INFORMATION
  Report Type: Report from Study
  Country: PL (occurrence: PL)
  Receive Date: 20121210
  Receipt Date: 20121226
  Transmission Date: 20130627
  Serious: Yes (Hospitalization, Disabling)
  Sender: FDA-Public Use
  Company Number: PL-ROCHE-1109515

PATIENT
  Age: 63 Year
  Sex: Female
  Weight: 68 kg

DRUGS (11)
  1. BEVACIZUMAB [Suspect]
     Indication: OVARIAN CANCER
     Dosage: Date of last dose prior to SAE: 06/Jul/2012
     Route: 042
     Dates: start: 20120405, end: 20120830
  2. PACLITAXEL [Suspect]
     Indication: OVARIAN CANCER
     Dosage: Date of last dose prior to SAE: 06/Jul/2012
     Route: 042
     Dates: start: 20120313
  3. CARBOPLATIN [Suspect]
     Indication: OVARIAN CANCER
     Dosage: Dosage form: AUC 5, Date of last dose prior to SAE: 06/Jul/2012
     Route: 042
     Dates: start: 20120313
  4. PREDNISONE [Concomitant]
     Indication: THROMBOCYTOPENIA
     Route: 065
     Dates: start: 20120726, end: 20120727
  5. PREDNISONE [Concomitant]
     Route: 065
     Dates: start: 20120728, end: 20120805
  6. PREDNISONE [Concomitant]
     Route: 065
     Dates: start: 20120806, end: 20120807
  7. PREDNISONE [Concomitant]
     Route: 065
     Dates: start: 20120808, end: 20120809
  8. PREDNISONE [Concomitant]
     Route: 065
     Dates: start: 20120810, end: 20120813
  9. DICLOFENAC SODIUM [Concomitant]
     Route: 065
     Dates: start: 20120731, end: 20120831
  10. SIMVASTATIN [Concomitant]
     Route: 065
     Dates: start: 201110
  11. ACENOCOUMAROLUM [Concomitant]
     Route: 065
     Dates: start: 20121106

REACTIONS (2)
  - Embolism venous [Not Recovered/Not Resolved]
  - Cardiac failure congestive [Recovering/Resolving]
